FAERS Safety Report 5598121-3 (Version None)
Quarter: 2008Q1

REPORT INFORMATION
  Report Type: 
  Country: None (occurrence: None)
  Receive Date: 20080122
  Receipt Date: 20080114
  Transmission Date: 20080703
  Serious: Yes (Death, Hospitalization)
  Sender: FDA-Public Use
  Company Number: NL-JNJFOC-20080103370

PATIENT
  Sex: Female

DRUGS (6)
  1. REMICADE [Suspect]
     Dosage: 4TH INFUSION, DATE UNSPECIFIED
     Route: 042
  2. REMICADE [Suspect]
     Dosage: 3 INFUSIONS, DATES UNSPECIFIED
     Route: 042
  3. REMICADE [Suspect]
     Dosage: 2ND INFUSION, DATE UNSPECIFIED
     Route: 042
  4. REMICADE [Suspect]
     Indication: CROHN'S DISEASE
     Route: 042
  5. PREDNISON [Concomitant]
  6. SALOFALK [Concomitant]

REACTIONS (2)
  - RECTAL CANCER [None]
  - VAGINAL FISTULA [None]
